FAERS Safety Report 8771087 (Version 1)
Quarter: 2012Q4

REPORT INFORMATION
  Report Type: 
  Country: US (occurrence: US)
  Receive Date: 20120906
  Receipt Date: 20120906
  Transmission Date: 20130627
  Serious: No
  Sender: FDA-Public Use
  Company Number: US-PFIZER INC-2012214930

PATIENT
  Sex: Female

DRUGS (2)
  1. VISTARIL [Suspect]
     Dosage: UNK
     Dates: end: 20120701
  2. LYRICA [Suspect]
     Dosage: UNK
     Dates: end: 20120701

REACTIONS (1)
  - Nasopharyngitis [Unknown]
